FAERS Safety Report 8617065-3 (Version None)
Quarter: 2012Q3

REPORT INFORMATION
  Report Type: 
  Country: None (occurrence: None)
  Receive Date: 20120823
  Receipt Date: 20120814
  Transmission Date: 20120928
  Serious: No
  Sender: FDA-Public Use
  Company Number: US-009507513-1208USA007083

PATIENT

DRUGS (2)
  1. RIBASPHERE [Suspect]
  2. PEG-INTRON [Suspect]
     Indication: HEPATITIS C
     Dosage: 120 MICROGRAM, QW
     Route: 058
     Dates: start: 20101022

REACTIONS (3)
  - TOOTH LOSS [None]
  - MUSCLE SPASMS [None]
  - MYALGIA [None]
